FAERS Safety Report 20125759 (Version 2)
Quarter: 2022Q1

REPORT INFORMATION
  Report Type: Spontaneous
  Country: US (occurrence: US)
  Receive Date: 20211129
  Receipt Date: 20220318
  Transmission Date: 20220423
  Serious: Yes (Hospitalization)
  Sender: FDA-Public Use
  Company Number: US-PFIZER INC-202101606277

PATIENT
  Age: 72 Year
  Sex: Male

DRUGS (2)
  1. VYNDAMAX [Suspect]
     Active Substance: TAFAMIDIS
     Dosage: 61 MG
  2. COVID-19 VACCINE [Concomitant]
     Dosage: UNK

REACTIONS (5)
  - Pain in extremity [Unknown]
  - Thrombosis [Unknown]
  - Fatigue [Unknown]
  - Dizziness postural [Unknown]
  - Arthralgia [Unknown]
